FAERS Safety Report 17192095 (Version 2)
Quarter: 2019Q4

REPORT INFORMATION
  Report Type: Report from Study
  Country: FR (occurrence: FR)
  Receive Date: 20191223
  Receipt Date: 20191227
  Transmission Date: 20200122
  Serious: Yes (Other)
  Sender: FDA-Public Use
  Company Number: FR-PFIZER INC-2019547850

PATIENT
  Age: 64 Year
  Sex: Male

DRUGS (9)
  1. SOLU-MEDROL [Suspect]
     Active Substance: METHYLPREDNISOLONE SODIUM SUCCINATE
     Indication: MYASTHENIC SYNDROME
     Dosage: 30 MG, UNK
     Route: 065
     Dates: start: 20110530, end: 20121012
  2. KIOVIG [Suspect]
     Active Substance: HUMAN IMMUNOGLOBULIN G
     Indication: MYASTHENIC SYNDROME
     Dosage: 30 G, UNK
     Route: 065
     Dates: start: 20120202, end: 20121212
  3. CORTANCYL [Suspect]
     Active Substance: PREDNISONE
     Dosage: 60 MG, 1X/DAY (30MG TWICE A DAY)
     Route: 065
     Dates: start: 20121120, end: 20121126
  4. FIRDAPSE [Suspect]
     Active Substance: AMIFAMPRIDINE
     Indication: MYASTHENIC SYNDROME
     Dosage: 40 MG, 1X/DAY (10 MG, 4 TIMES A DAY)
     Route: 048
     Dates: start: 20111208, end: 20130412
  5. SOLU-MEDROL [Suspect]
     Active Substance: METHYLPREDNISOLONE SODIUM SUCCINATE
     Dosage: 20 MG, UNK
     Route: 065
     Dates: start: 20121109, end: 201312
  6. FIRDAPSE [Suspect]
     Active Substance: AMIFAMPRIDINE
     Dosage: 80 MG, 1X/DAY (20MG, 4 TIMES A DAY)
     Route: 048
     Dates: start: 200907, end: 20111207
  7. MESTINON [Suspect]
     Active Substance: PYRIDOSTIGMINE BROMIDE
     Indication: MYASTHENIC SYNDROME
     Dosage: 360 MG, 1X/DAY (180 MILLIGRAM, TWICE A DAY)
     Route: 065
     Dates: start: 200907
  8. CORTANCYL [Suspect]
     Active Substance: PREDNISONE
     Indication: MYASTHENIC SYNDROME
     Dosage: 30 MG, 1X/DAY
     Route: 065
     Dates: start: 20121127, end: 20130209
  9. KIOVIG [Suspect]
     Active Substance: HUMAN IMMUNOGLOBULIN G
     Dosage: 160 MG, UNK
     Route: 065
     Dates: start: 20120315, end: 20130204

REACTIONS (3)
  - Hallucination [Recovered/Resolved]
  - Product use in unapproved indication [Unknown]
  - Off label use [Unknown]

NARRATIVE: CASE EVENT DATE: 20110530
